FAERS Safety Report 9225516 (Version 2)
Quarter: 2014Q2

REPORT INFORMATION
  Report Type: Report from Study
  Country: US (occurrence: US)
  Receive Date: 20130411
  Receipt Date: 20140421
  Transmission Date: 20141212
  Serious: Yes (Death)
  Sender: FDA-Public Use
  Company Number: US-ROCHE-1212848

PATIENT
  Sex: Male

DRUGS (3)
  1. CELLCEPT [Suspect]
     Indication: HEART TRANSPLANT
     Route: 048
     Dates: start: 200209, end: 20121126
  2. CELLCEPT [Suspect]
     Dosage: REFILL: 3 TIMES
     Route: 048
  3. TACROLIMUS [Concomitant]

REACTIONS (1)
  - Lung neoplasm malignant [Fatal]
